FAERS Safety Report 26100408 (Version 1)
Quarter: 2025Q4

REPORT INFORMATION
  Report Type: Spontaneous
  Country: EU (occurrence: EU)
  Receive Date: 20251128
  Receipt Date: 20251128
  Transmission Date: 20260117
  Serious: Yes (Death, Other)
  Sender: ALKEM
  Company Number: EU-ALKEM LABORATORIES LIMITED-ES-ALKEM-2025-12821

PATIENT
  Age: 38 Year
  Sex: Female

DRUGS (1)
  1. LIDOCAINE [Suspect]
     Active Substance: LIDOCAINE
     Indication: Pain management
     Dosage: UNK (500-1000 MILLIGRAM), (INFILTRATION)
     Route: 058

REACTIONS (6)
  - Cardiac arrest [Fatal]
  - Local anaesthetic systemic toxicity [Fatal]
  - Generalised tonic-clonic seizure [Fatal]
  - Overdose [Fatal]
  - Agitation [Fatal]
  - Restlessness [Fatal]
